FAERS Safety Report 10342150 (Version 1)
Quarter: 2014Q3

REPORT INFORMATION
  Report Type: Spontaneous
  Country: US (occurrence: None)
  Receive Date: 20140723
  Receipt Date: 20140723
  Transmission Date: 20150326
  Serious: Yes (Hospitalization)
  Sender: FDA-Public Use
  Company Number: 2014HINLIT0644

PATIENT
  Age: 23 Year
  Sex: Female

DRUGS (2)
  1. LORAZEPAM (LORAZEPAM) [Concomitant]
     Active Substance: LORAZEPAM
  2. LEVETIRACTAM [Suspect]
     Active Substance: LEVETIRACETAM
     Indication: CONVULSION

REACTIONS (5)
  - Decreased appetite [None]
  - Renal failure acute [None]
  - Sleep disorder [None]
  - Myalgia [None]
  - Stress [None]
